FAERS Safety Report 6820395-9 (Version None)
Quarter: 2010Q3

REPORT INFORMATION
  Report Type: 
  Country: None (occurrence: None)
  Receive Date: 20100707
  Receipt Date: 20100628
  Transmission Date: 20110219
  Serious: Yes (Hospitalization, Other)
  Sender: FDA-Public Use
  Company Number: US-TEVA-239474USA

PATIENT

DRUGS (2)
  1. METHYLPREDNISOLONE TABLET 4MG [Suspect]
     Indication: SYSTEMIC LUPUS ERYTHEMATOSUS
  2. MYCOPHENOLIC ACID [Suspect]
     Indication: SYSTEMIC LUPUS ERYTHEMATOSUS

REACTIONS (1)
  - PNEUMOCYSTIS JIROVECI PNEUMONIA [None]
